FAERS Safety Report 6007629-8 (Version None)
Quarter: 2008Q4

REPORT INFORMATION
  Report Type: 
  Country: None (occurrence: None)
  Receive Date: 20081217
  Receipt Date: 20080325
  Transmission Date: 20090506
  Serious: No
  Sender: FDA-Public Use
  Company Number: US-ASTRAZENECA-2008UW05973

PATIENT
  Age: 62 Year
  Sex: Male
  Weight: 78.5 kg

DRUGS (3)
  1. CRESTOR [Suspect]
     Indication: BLOOD CHOLESTEROL
     Route: 048
  2. ETODOLAC [Concomitant]
  3. ASPIRIN [Concomitant]

REACTIONS (3)
  - HEADACHE [None]
  - NAUSEA [None]
  - VISION BLURRED [None]
